FAERS Safety Report 8552067-7 (Version None)
Quarter: 2012Q3

REPORT INFORMATION
  Report Type: 
  Country: None (occurrence: None)
  Receive Date: 20120731
  Receipt Date: 20120723
  Transmission Date: 20120928
  Serious: Yes (Hospitalization)
  Sender: FDA-Public Use
  Company Number: US-BIOGENIDEC-2011BI015211

PATIENT
  Age: 58 Year
  Sex: Female

DRUGS (2)
  1. ZANAFLEX [Concomitant]
     Indication: MUSCLE SPASTICITY
  2. AVONEX [Suspect]
     Indication: MULTIPLE SCLEROSIS
     Route: 030
     Dates: start: 20011210

REACTIONS (7)
  - URINARY TRACT INFECTION [None]
  - ILEUS [None]
  - GASTROENTERITIS [None]
  - STAPHYLOCOCCAL SEPSIS [None]
  - PNEUMONIA [None]
  - DEEP VEIN THROMBOSIS [None]
  - SEPTIC PHLEBITIS [None]
